FAERS Safety Report 7150379-5 (Version None)
Quarter: 2010Q4

REPORT INFORMATION
  Report Type: 
  Country: None (occurrence: None)
  Receive Date: 20101210
  Receipt Date: 20101130
  Transmission Date: 20110411
  Serious: Yes (Hospitalization)
  Sender: FDA-Public Use
  Company Number: CA-JNJFOC-20101201049

PATIENT
  Sex: Female

DRUGS (3)
  1. REMICADE [Suspect]
     Indication: CROHN'S DISEASE
     Dosage: EVERY 8 TO 10 WEEKS.
     Route: 042
  2. REMICADE [Suspect]
     Dosage: EVERY 8-10 WEEKS
     Route: 042
  3. HOMEOPATHIC MEDICATIONS [Concomitant]

REACTIONS (1)
  - RESECTION OF RECTUM [None]
